FAERS Safety Report 24612799 (Version 1)
Quarter: 2024Q4

REPORT INFORMATION
  Report Type: Spontaneous
  Country: US (occurrence: US)
  Receive Date: 20241113
  Receipt Date: 20241113
  Transmission Date: 20250115
  Serious: Yes (Death, Hospitalization, Other)
  Sender: PFIZER
  Company Number: US-PFIZER INC-PV202400145801

PATIENT
  Age: 53 Year
  Sex: Male

DRUGS (10)
  1. MORPHINE SULFATE [Suspect]
     Active Substance: MORPHINE SULFATE
     Indication: Pain management
     Dosage: 4 MILLIGRAM, Q4 AS NEEDED
     Dates: start: 202410, end: 202410
  2. DILAUDID [Suspect]
     Active Substance: HYDROMORPHONE HYDROCHLORIDE
     Indication: Pain management
     Dosage: 0.3 MILLIGRAM, Q3H (EVERY 3 HOURS) AS NEEDED, UNKNOWN
     Dates: start: 202410, end: 202410
  3. VIVITROL [Suspect]
     Active Substance: NALTREXONE
     Indication: Drug dependence
     Dosage: 380 MILLIGRAM, QMO (EVERY MONTH), INTRAMUSC-GLUTEAL
     Route: 030
     Dates: start: 2024, end: 20240930
  4. CODEINE [Suspect]
     Active Substance: CODEINE
  5. COCAINE [Suspect]
     Active Substance: COCAINE
     Dosage: UNK
     Dates: start: 202410, end: 202410
  6. SEROQUEL [Concomitant]
     Active Substance: QUETIAPINE FUMARATE
     Dosage: UNK
  7. DEPAKOTE [Concomitant]
     Active Substance: DIVALPROEX SODIUM
     Dosage: UNK
  8. BUSPIRONE [Concomitant]
     Active Substance: BUSPIRONE HYDROCHLORIDE
     Dosage: UNK
  9. ZYPREXA [Concomitant]
     Active Substance: OLANZAPINE
     Dosage: UNK
  10. GABAPENTIN [Concomitant]
     Active Substance: GABAPENTIN
     Dosage: UNK

REACTIONS (8)
  - Death [Fatal]
  - Intentional overdose [Unknown]
  - Contraindicated product administered [Unknown]
  - Pancreatitis acute [Unknown]
  - Supraventricular tachycardia [Unknown]
  - Pancreatic neoplasm [Unknown]
  - Inadequate analgesia [Unknown]
  - Treatment noncompliance [Unknown]

NARRATIVE: CASE EVENT DATE: 20241001
